FAERS Safety Report 5679589-0 (Version None)
Quarter: 2008Q1

REPORT INFORMATION
  Report Type: 
  Country: None (occurrence: None)
  Receive Date: 20080325
  Receipt Date: 20080313
  Transmission Date: 20080703
  Serious: Yes (Other)
  Sender: FDA-Public Use
  Company Number: CA-PFIZER INC-2008024520

PATIENT
  Sex: Male

DRUGS (3)
  1. LYRICA [Suspect]
     Route: 048
  2. KETAMINE HCL [Concomitant]
  3. OPIOIDS [Concomitant]

REACTIONS (3)
  - DRUG TOXICITY [None]
  - DYSPHAGIA [None]
  - RESPIRATORY DEPRESSION [None]
